FAERS Safety Report 12380035 (Version 1)
Quarter: 2016Q2

REPORT INFORMATION
  Report Type: Spontaneous
  Country: US (occurrence: US)
  Receive Date: 20160518
  Receipt Date: 20160518
  Transmission Date: 20160815
  Serious: No
  Sender: FDA-Public Use
  Company Number: US-ZYDUS-010192

PATIENT
  Sex: Female

DRUGS (2)
  1. TOPIRAMATE. [Suspect]
     Active Substance: TOPIRAMATE
     Indication: MIGRAINE
     Route: 048
  2. TOPIRAMATE. [Suspect]
     Active Substance: TOPIRAMATE
     Indication: MIGRAINE
     Route: 048

REACTIONS (6)
  - Drug withdrawal syndrome [Unknown]
  - Headache [Unknown]
  - Visual impairment [Recovered/Resolved]
  - Drug dependence [Unknown]
  - Migraine [Recovered/Resolved]
  - Drug ineffective for unapproved indication [Unknown]
